FAERS Safety Report 11338412 (Version 1)
Quarter: 2015Q3

REPORT INFORMATION
  Report Type: Spontaneous
  Country: US (occurrence: US)
  Receive Date: 20150803
  Receipt Date: 20150803
  Transmission Date: 20151125
  Serious: No
  Sender: FDA-Public Use
  Company Number: US-ELI_LILLY_AND_COMPANY-US200708004979

PATIENT
  Sex: Male

DRUGS (2)
  1. PROVIGIL [Concomitant]
     Active Substance: MODAFINIL
     Indication: ATTENTION DEFICIT/HYPERACTIVITY DISORDER
  2. STRATTERA [Suspect]
     Active Substance: ATOMOXETINE HYDROCHLORIDE
     Indication: ATTENTION DEFICIT/HYPERACTIVITY DISORDER

REACTIONS (1)
  - Palpitations [Unknown]
